FAERS Safety Report 11534397 (Version 1)
Quarter: 2015Q3

REPORT INFORMATION
  Report Type: Spontaneous
  Country: FR (occurrence: FR)
  Receive Date: 20150922
  Receipt Date: 20150922
  Transmission Date: 20151125
  Serious: Yes (Hospitalization, Other)
  Sender: FDA-Public Use
  Company Number: FR-009507513-1509FRA000040

PATIENT
  Age: 13 Year
  Sex: Male
  Weight: 50 kg

DRUGS (4)
  1. ALVESCO [Concomitant]
     Active Substance: CICLESONIDE
     Indication: ASTHMA
     Dosage: 1 INHALATION IN THE MORNING AND IN THE EVENING
     Dates: start: 20150416, end: 20150628
  2. KESTIN [Concomitant]
     Active Substance: EBASTINE
     Indication: RHINITIS ALLERGIC
     Dosage: 1 TABLET, QD
     Route: 048
     Dates: start: 20150416, end: 20150628
  3. SINGULAIR [Suspect]
     Active Substance: MONTELUKAST SODIUM
     Indication: ASTHMA
     Dosage: 5 MG (1 TABLET), QD
     Route: 048
     Dates: start: 20150416, end: 20150628
  4. SINGULAIR [Suspect]
     Active Substance: MONTELUKAST SODIUM
     Indication: COUGH

REACTIONS (3)
  - Myoclonus [Recovering/Resolving]
  - Seizure [Recovering/Resolving]
  - Tremor [Recovered/Resolved]

NARRATIVE: CASE EVENT DATE: 201504
